FAERS Safety Report 13048139 (Version 1)
Quarter: 2016Q4

REPORT INFORMATION
  Report Type: Spontaneous
  Country: FR (occurrence: FR)
  Receive Date: 20161220
  Receipt Date: 20161220
  Transmission Date: 20170207
  Serious: Yes (Hospitalization)
  Sender: FDA-Public Use
  Company Number: FR-MYLANLABS-2016M1055979

PATIENT

DRUGS (2)
  1. VANCOMYCIN MYLAN [Suspect]
     Active Substance: VANCOMYCIN
     Indication: ANTIBIOTIC PROPHYLAXIS
     Dosage: 1 G, BID
     Route: 042
     Dates: start: 20161110, end: 20161117
  2. NEBCINE [Suspect]
     Active Substance: TOBRAMYCIN
     Indication: ANTIBIOTIC PROPHYLAXIS
     Dosage: 200 MG, QD
     Route: 042
     Dates: start: 20161111

REACTIONS (2)
  - Antibiotic level above therapeutic [Recovered/Resolved]
  - Acute kidney injury [Recovered/Resolved]

NARRATIVE: CASE EVENT DATE: 20161117
